FAERS Safety Report 8351439-3 (Version None)
Quarter: 2012Q2

REPORT INFORMATION
  Report Type: 
  Country: None (occurrence: None)
  Receive Date: 20120510
  Receipt Date: 20120507
  Transmission Date: 20120825
  Serious: Yes (Death)
  Sender: FDA-Public Use
  Company Number: DK-ROCHE-1047803

PATIENT
  Sex: Female

DRUGS (16)
  1. ETOPOSIDE [Suspect]
     Indication: DIFFUSE LARGE B-CELL LYMPHOMA
     Route: 042
     Dates: start: 20110125, end: 20110501
  2. FERRO DURETTER [Concomitant]
     Indication: MINERAL SUPPLEMENTATION
  3. VITAMIN D [Concomitant]
     Indication: SUPPLEMENTATION THERAPY
  4. BISOPROLOL FUMARATE [Concomitant]
     Indication: HYPERTENSION
  5. SYMBICORT [Concomitant]
     Indication: LUNG DISORDER
  6. CYCLOPHOSPHAMIDE [Suspect]
     Indication: DIFFUSE LARGE B-CELL LYMPHOMA
     Dosage: DOSED ACCORDING TO TREATMENT SCHEMA EVERY 3
     Route: 042
     Dates: start: 20110125, end: 20110501
  7. LASOPRAZOLE [Concomitant]
  8. WARFARIN SODIUM [Concomitant]
     Indication: ANTICOAGULANT THERAPY
  9. CITALOPRAM HYDROBROMIDE [Concomitant]
     Indication: DEPRESSION
     Dosage: DAILY DOSE: 40 MG
  10. PREDNISOLONE [Suspect]
     Indication: DIFFUSE LARGE B-CELL LYMPHOMA
     Route: 042
     Dates: start: 20110125, end: 20110501
  11. VINCRISTINE [Suspect]
     Indication: DIFFUSE LARGE B-CELL LYMPHOMA
     Route: 042
     Dates: start: 20110125, end: 20110501
  12. CODEINE [Concomitant]
     Indication: ANALGESIC THERAPY
  13. MABTHERA [Suspect]
     Indication: DIFFUSE LARGE B-CELL LYMPHOMA
     Dosage: DOSED ACCORDING TO TREATMENT SCHEMA EVERY 3
     Route: 042
     Dates: start: 20110125, end: 20110501
  14. RASBURICASE [Concomitant]
     Indication: TUMOUR LYSIS SYNDROME
     Dosage: DAILY DOSE: 12 MG
     Dates: start: 20120124, end: 20120124
  15. FUROSEMIDE [Concomitant]
     Indication: DIURETIC THERAPY
  16. PERINDOPRIL ERBUMINE [Concomitant]
     Indication: HYPERTENSION
     Dosage: DAILY DOSE: 5 MG

REACTIONS (2)
  - HEPATIC FAILURE [None]
  - HEPATITIS B [None]
